FAERS Safety Report 12134574 (Version 2)
Quarter: 2016Q2

REPORT INFORMATION
  Report Type: Report from Study
  Country: JP (occurrence: JP)
  Receive Date: 20160301
  Receipt Date: 20160503
  Transmission Date: 20160815
  Serious: Yes (Death, Hospitalization)
  Sender: FDA-Public Use
  Company Number: JP-EISAI MEDICAL RESEARCH-EC-2015-010901

PATIENT
  Age: 59 Year
  Sex: Female
  Weight: 45 kg

DRUGS (14)
  1. HALAVEN [Suspect]
     Active Substance: ERIBULIN MESYLATE
     Route: 041
     Dates: start: 20150723, end: 20150907
  2. OXYCONTIN [Concomitant]
     Active Substance: OXYCODONE HYDROCHLORIDE
  3. G-LASTA [Concomitant]
     Active Substance: PEGFILGRASTIM
  4. LYRICA [Concomitant]
     Active Substance: PREGABALIN
  5. VOLTAREN [Concomitant]
     Active Substance: DICLOFENAC SODIUM
  6. TEPRENONE [Concomitant]
     Active Substance: TEPRENONE
  7. REBAMIPIDE [Concomitant]
     Active Substance: REBAMIPIDE
  8. GEBEN [Concomitant]
     Active Substance: SILVER SULFADIAZINE
  9. LOXOPROFEN [Suspect]
     Active Substance: LOXOPROFEN
     Indication: PRODUCT USED FOR UNKNOWN INDICATION
     Dosage: UNKNOWN
     Route: 048
  10. DECADRON [Concomitant]
     Active Substance: DEXAMETHASONE
  11. RANMARK [Concomitant]
     Active Substance: DENOSUMAB
  12. MAGLAX [Concomitant]
     Active Substance: MAGNESIUM OXIDE
  13. ADOFEED [Concomitant]
     Active Substance: FLURBIPROFEN
  14. HALAVEN [Suspect]
     Active Substance: ERIBULIN MESYLATE
     Indication: TUBULAR BREAST CARCINOMA
     Route: 041
     Dates: start: 20150706, end: 20150706

REACTIONS (3)
  - Duodenal ulcer haemorrhage [Fatal]
  - Leukopenia [Recovered/Resolved]
  - Febrile neutropenia [Recovered/Resolved]

NARRATIVE: CASE EVENT DATE: 20150713
